FAERS Safety Report 17793682 (Version 1)
Quarter: 2020Q2

REPORT INFORMATION
  Report Type: Report from Study
  Country: US (occurrence: US)
  Receive Date: 20200515
  Receipt Date: 20200515
  Transmission Date: 20200714
  Serious: Yes (Other)
  Sender: FDA-Public Use
  Company Number: NVSC2020US132069

PATIENT
  Sex: Male

DRUGS (1)
  1. GILENYA [Suspect]
     Active Substance: FINGOLIMOD HYDROCHLORIDE
     Indication: MULTIPLE SCLEROSIS
     Dosage: 0.5 MG, QD
     Route: 048

REACTIONS (8)
  - Amnesia [Recovering/Resolving]
  - Dystonia [Recovering/Resolving]
  - Arthralgia [Recovering/Resolving]
  - Insomnia [Recovering/Resolving]
  - Pain [Recovering/Resolving]
  - Discomfort [Recovering/Resolving]
  - Back pain [Recovering/Resolving]
  - Muscle contractions involuntary [Recovering/Resolving]
